FAERS Safety Report 24228853 (Version 6)
Quarter: 2025Q3

REPORT INFORMATION
  Report Type: Spontaneous
  Country: CA (occurrence: CA)
  Receive Date: 20240820
  Receipt Date: 20250929
  Transmission Date: 20251020
  Serious: Yes (Hospitalization)
  Sender: PFIZER
  Company Number: CA-PFIZER INC-202200474197

PATIENT
  Age: 25 Year
  Sex: Female
  Weight: 61 kg

DRUGS (11)
  1. RUXIENCE [Suspect]
     Active Substance: RITUXIMAB-PVVR
     Indication: Thrombotic thrombocytopenic purpura
     Route: 042
     Dates: start: 20220310
  2. RUXIENCE [Suspect]
     Active Substance: RITUXIMAB-PVVR
     Route: 042
     Dates: start: 20220323
  3. RUXIENCE [Suspect]
     Active Substance: RITUXIMAB-PVVR
     Route: 042
     Dates: start: 20220323
  4. RUXIENCE [Suspect]
     Active Substance: RITUXIMAB-PVVR
     Route: 042
     Dates: start: 20240814
  5. RUXIENCE [Suspect]
     Active Substance: RITUXIMAB-PVVR
     Route: 042
     Dates: start: 20240828
  6. RUXIENCE [Suspect]
     Active Substance: RITUXIMAB-PVVR
     Route: 042
     Dates: start: 20240828
  7. ARIPIPRAZOLE [Concomitant]
     Active Substance: ARIPIPRAZOLE
     Route: 030
  8. DOXYLAMINE SUCCINATE\PYRIDOXINE HYDROCHLORIDE [Concomitant]
     Active Substance: DOXYLAMINE SUCCINATE\PYRIDOXINE HYDROCHLORIDE
     Dosage: 20 MG, 2X/DAY
     Route: 048
  9. PALIPERIDONE [Concomitant]
     Active Substance: PALIPERIDONE
     Route: 030
  10. FOLIC ACID [Concomitant]
     Active Substance: FOLIC ACID
  11. MINERALS\VITAMINS [Concomitant]
     Active Substance: MINERALS\VITAMINS

REACTIONS (4)
  - Panic attack [Recovered/Resolved]
  - Maternal exposure during pregnancy [Unknown]
  - Preterm premature rupture of membranes [Recovered/Resolved]
  - Off label use [Unknown]

NARRATIVE: CASE EVENT DATE: 20220310
